FAERS Safety Report 6679308-5 (Version None)
Quarter: 2010Q2

REPORT INFORMATION
  Report Type: 
  Country: None (occurrence: None)
  Receive Date: 20100409
  Receipt Date: 20100325
  Transmission Date: 20101027
  Serious: Yes (Hospitalization)
  Sender: FDA-Public Use
  Company Number: 002778

PATIENT
  Sex: Male
  Weight: 66 kg

DRUGS (9)
  1. CERTOLIZUMAB PEGOL (CDP870) [Suspect]
     Indication: RHEUMATOID ARTHRITIS
     Dosage: (400 MG 1X/2 WEEKS SUBCUTANEOUS)
     Route: 058
     Dates: start: 20091119
  2. DICLOFENAC [Concomitant]
  3. METEX [Concomitant]
  4. PREDNI H [Concomitant]
  5. CYANOCOBALAMIN [Concomitant]
  6. SULFASALAZINE [Concomitant]
  7. BISOPROLOL [Concomitant]
  8. ALENDRONATE SODIUM [Concomitant]
  9. SIMVASTATIN [Concomitant]

REACTIONS (9)
  - ASPERGILLOSIS [None]
  - BLOOD CULTURE POSITIVE [None]
  - BLOOD LACTATE DEHYDROGENASE INCREASED [None]
  - BRONCHOALVEOLAR LAVAGE ABNORMAL [None]
  - EMPHYSEMA [None]
  - HAEMOGLOBIN DECREASED [None]
  - LUNG INFILTRATION [None]
  - NEISSERIA INFECTION [None]
  - RESPIRATORY FAILURE [None]
